FAERS Safety Report 9414654 (Version 1)
Quarter: 2013Q3

REPORT INFORMATION
  Report Type: Report from Study
  Country: CA (occurrence: CA)
  Receive Date: 20130723
  Receipt Date: 20130723
  Transmission Date: 20140515
  Serious: Yes (Other)
  Sender: FDA-Public Use
  Company Number: PHHY2013CA037830

PATIENT
  Sex: Female

DRUGS (5)
  1. ACLASTA [Suspect]
     Indication: OSTEOPOROSIS
     Dosage: UNK UKN, ONCE A YEAR
     Route: 042
     Dates: start: 20130411
  2. CALCIUM [Concomitant]
     Dosage: 500 MG, BID
     Route: 048
  3. D-TABS [Concomitant]
     Dosage: 1 DF, PER WEEK
  4. ZOLOFT [Concomitant]
     Dosage: 2-4 DF, PER DAY
     Route: 048
  5. VAGIFEM [Concomitant]
     Dosage: 1 DF, QW2
     Route: 067

REACTIONS (5)
  - Musculoskeletal disorder [Recovered/Resolved]
  - Gait disturbance [Unknown]
  - Muscular weakness [Unknown]
  - Muscle spasms [Recovered/Resolved]
  - Hypoaesthesia [Unknown]
